FAERS Safety Report 6719374-1 (Version None)
Quarter: 2010Q2

REPORT INFORMATION
  Report Type: 
  Country: None (occurrence: None)
  Receive Date: 20100511
  Receipt Date: 20100505
  Transmission Date: 20101027
  Serious: Yes (Hospitalization)
  Sender: FDA-Public Use
  Company Number: NL-BRISTOL-MYERS SQUIBB COMPANY-15072986

PATIENT
  Age: 80 Year
  Sex: Female
  Weight: 56 kg

DRUGS (10)
  1. CISPLATIN [Suspect]
     Indication: NON-SMALL CELL LUNG CANCER
     Route: 042
     Dates: start: 20100408
  2. PEMETREXED DISODIUM [Suspect]
     Indication: NON-SMALL CELL LUNG CANCER
     Route: 042
     Dates: start: 20100408
  3. FOLIC ACID [Concomitant]
     Indication: PROPHYLAXIS
     Dates: start: 20100401
  4. VITAMIN B-12 [Concomitant]
     Indication: PROPHYLAXIS
     Dates: start: 20100401
  5. DEXAMETHASONE [Concomitant]
     Indication: PROPHYLAXIS
     Dates: start: 20100407
  6. CISORDINOL [Concomitant]
     Indication: ANXIETY
     Dates: start: 20100319, end: 20100407
  7. PARACETAMOL [Concomitant]
     Indication: PAIN
     Dates: start: 20100317
  8. FRAXIPARINE [Concomitant]
     Indication: THROMBOSIS
     Dates: start: 20100323, end: 20100407
  9. PREDNISONE TAB [Concomitant]
     Indication: DYSPNOEA
     Dates: start: 20100323, end: 20100408
  10. METOCLOPRAMIDE HYDROCHLORIDE [Concomitant]
     Dates: start: 20100411

REACTIONS (2)
  - C-REACTIVE PROTEIN INCREASED [None]
  - DIZZINESS [None]
